FAERS Safety Report 9804277 (Version 2)
Quarter: 2014Q1

REPORT INFORMATION
  Report Type: Spontaneous
  Country: ES (occurrence: ES)
  Receive Date: 20140108
  Receipt Date: 20140204
  Transmission Date: 20141002
  Serious: Yes (Other)
  Sender: FDA-Public Use
  Company Number: ES-PFIZER INC-2014001119

PATIENT
  Age: 40 Year
  Sex: Male

DRUGS (6)
  1. METRONIDAZOLE [Suspect]
     Indication: STATUS EPILEPTICUS
     Dosage: 100 MG, 2X/DAY
  2. METRONIDAZOLE [Suspect]
     Indication: BRAIN ABSCESS
  3. PHENYTOIN SODIUM [Suspect]
     Indication: STATUS EPILEPTICUS
     Dosage: 100 MG, 2X/DAY
  4. PHENYTOIN SODIUM [Suspect]
     Indication: BRAIN ABSCESS
  5. CEFTRIAXONE [Suspect]
     Indication: STATUS EPILEPTICUS
     Dosage: 2 G, 2X/DAY
     Route: 042
  6. CEFTRIAXONE [Suspect]
     Indication: BRAIN ABSCESS

REACTIONS (1)
  - Drug reaction with eosinophilia and systemic symptoms [Recovered/Resolved]
